FAERS Safety Report 14741336 (Version 2)
Quarter: 2018Q2

REPORT INFORMATION
  Report Type: Other
  Country: US (occurrence: US)
  Receive Date: 20180410
  Receipt Date: 20180422
  Transmission Date: 20180711
  Serious: No
  Sender: FDA-Public Use
  Company Number: US-APOTEX-2018AP007366

PATIENT

DRUGS (1)
  1. MOMETASONE [Suspect]
     Active Substance: MOMETASONE
     Indication: SINUS DISORDER
     Dosage: UNK
     Route: 045
     Dates: end: 201701

REACTIONS (4)
  - Asthma [Unknown]
  - Epistaxis [Unknown]
  - Product substitution issue [Unknown]
  - Drug ineffective [Unknown]
